FAERS Safety Report 5151546-2 (Version None)
Quarter: 2006Q4

REPORT INFORMATION
  Report Type: 
  Country: None (occurrence: None)
  Receive Date: 20061115
  Receipt Date: 20060928
  Transmission Date: 20070319
  Serious: No
  Sender: FDA-Public Use
  Company Number: US-ELI_LILLY_AND_COMPANY-US200609007427

PATIENT
  Sex: Female

DRUGS (2)
  1. FORTEO [Suspect]
     Indication: OSTEOPOROSIS
     Dosage: 20 UG, DAILY (1/D)
     Route: 058
     Dates: start: 20050804
  2. CYMBALTA [Concomitant]
     Indication: NEUROPATHY
     Dosage: 30 MG, DAILY (1/D)
     Dates: start: 20050101

REACTIONS (1)
  - NO ADVERSE EFFECT [None]
